FAERS Safety Report 6123326-2 (Version None)
Quarter: 2009Q1

REPORT INFORMATION
  Report Type: 
  Country: None (occurrence: None)
  Receive Date: 20090318
  Receipt Date: 20090304
  Transmission Date: 20090719
  Serious: Yes (Life-Threatening, Hospitalization)
  Sender: FDA-Public Use
  Company Number: DE-PFIZER INC-2009177702

PATIENT

DRUGS (1)
  1. ZELDOX [Suspect]
     Indication: CONDUCT DISORDER
     Dosage: 80 MG, 1X/DAY
     Dates: start: 20090204, end: 20090209

REACTIONS (2)
  - LONG QT SYNDROME [None]
  - VENTRICULAR TACHYCARDIA [None]
